FAERS Safety Report 6536626-9 (Version None)
Quarter: 2010Q1

REPORT INFORMATION
  Report Type: 
  Country: None (occurrence: None)
  Receive Date: 20100113
  Receipt Date: 20100104
  Transmission Date: 20100710
  Serious: Yes (Other)
  Sender: FDA-Public Use
  Company Number: JP-PFIZER INC-2010002929

PATIENT
  Sex: Male

DRUGS (2)
  1. VFEND [Suspect]
     Indication: PNEUMATOSIS
     Dosage: UNK
     Route: 048
     Dates: start: 20071001
  2. CLARITH [Concomitant]
     Indication: BRONCHITIS
     Route: 048

REACTIONS (5)
  - FLUSHING [None]
  - HYPOAESTHESIA [None]
  - LENTIGO [None]
  - MALAISE [None]
  - SOMNOLENCE [None]
